FAERS Safety Report 18306651 (Version 1)
Quarter: 2020Q3

REPORT INFORMATION
  Report Type: Spontaneous
  Country: US (occurrence: US)
  Receive Date: 20200923
  Receipt Date: 20200923
  Transmission Date: 20201103
  Serious: No
  Sender: FDA-Public Use
  Company Number: None

PATIENT
  Age: 48 Year
  Sex: Female

DRUGS (1)
  1. AMBRISENTAN 5MG TABLETS 30/BO: 5MG [Suspect]
     Active Substance: AMBRISENTAN
     Indication: CARDIAC SEPTAL DEFECT
     Route: 048
     Dates: start: 20200911

REACTIONS (7)
  - Dysstasia [None]
  - Rash [None]
  - Skin disorder [None]
  - Nasal congestion [None]
  - Peripheral swelling [None]
  - Rash pruritic [None]
  - Pain [None]

NARRATIVE: CASE EVENT DATE: 20200918
